FAERS Safety Report 25840385 (Version 1)
Quarter: 2025Q3

REPORT INFORMATION
  Report Type: Spontaneous
  Country: EU (occurrence: EU)
  Receive Date: 20250924
  Receipt Date: 20250924
  Transmission Date: 20251021
  Serious: Yes (Life-Threatening)
  Sender: DAIICHI
  Company Number: None

PATIENT
  Age: 13 Year
  Sex: Male

DRUGS (1)
  1. ENHERTU [Suspect]
     Active Substance: FAM-TRASTUZUMAB DERUXTECAN-NXKI
     Indication: Desmoplastic small round cell tumour
     Route: 042
     Dates: start: 20250527, end: 202507

REACTIONS (1)
  - Haemophagocytic lymphohistiocytosis [Recovering/Resolving]

NARRATIVE: CASE EVENT DATE: 20250724
